FAERS Safety Report 14977459 (Version 2)
Quarter: 2018Q2

REPORT INFORMATION
  Report Type: Spontaneous
  Country: JP (occurrence: JP)
  Receive Date: 20180606
  Receipt Date: 20180615
  Transmission Date: 20180711
  Serious: Yes (Other)
  Sender: FDA-Public Use
  Company Number: JP-AMGEN-JPNSP2018074419

PATIENT
  Age: 73 Year
  Sex: Female

DRUGS (5)
  1. PRALIA [Suspect]
     Active Substance: DENOSUMAB
     Dosage: 60 MG, UNK
     Route: 058
     Dates: start: 20171129, end: 20180528
  2. PRALIA [Suspect]
     Active Substance: DENOSUMAB
     Indication: OSTEOPOROSIS
     Dosage: 60 MG, UNK
     Route: 058
     Dates: start: 20161020
  3. RECALBON [Concomitant]
     Active Substance: MINODRONIC ACID
     Dosage: 50 UNK, UNK
     Route: 048
     Dates: start: 20111121, end: 20150326
  4. PRALIA [Suspect]
     Active Substance: DENOSUMAB
     Dosage: 60 MG, UNK
     Route: 058
     Dates: start: 20170419
  5. EDIROL [Concomitant]
     Active Substance: ELDECALCITOL
     Dosage: 1 DF, UNK
     Route: 065
     Dates: start: 20110326

REACTIONS (1)
  - Osteomyelitis [Unknown]

NARRATIVE: CASE EVENT DATE: 201801
